FAERS Safety Report 6750621-6 (Version None)
Quarter: 2010Q2

REPORT INFORMATION
  Report Type: 
  Country: None (occurrence: None)
  Receive Date: 20100527
  Receipt Date: 20100518
  Transmission Date: 20101027
  Serious: Yes (Hospitalization)
  Sender: FDA-Public Use
  Company Number: UTC-000900

PATIENT
  Age: 15 Year
  Sex: Female

DRUGS (1)
  1. REMODULIN [Suspect]
     Indication: PULMONARY ARTERIAL HYPERTENSION

REACTIONS (5)
  - BURNING SENSATION [None]
  - CHEST PAIN [None]
  - DEVICE MALFUNCTION [None]
  - DYSPNOEA [None]
  - LUNG DISORDER [None]
